FAERS Safety Report 20033341 (Version 13)
Quarter: 2022Q3

REPORT INFORMATION
  Report Type: Report from Study
  Country: US (occurrence: US)
  Receive Date: 20211104
  Receipt Date: 20220920
  Transmission Date: 20221027
  Serious: Yes (Hospitalization, Other)
  Sender: FDA-Public Use
  Company Number: US-NOVARTISPH-NVSC2021US250459

PATIENT
  Age: 56 Year
  Sex: Male

DRUGS (2)
  1. COSENTYX [Suspect]
     Active Substance: SECUKINUMAB
     Indication: Psoriasis
     Dosage: 300 MG, EVERY WEEK FOR 5 WEEKS, THEN EVERY 4 WEEKS
     Route: 058
     Dates: start: 202110
  2. COSENTYX [Suspect]
     Active Substance: SECUKINUMAB
     Dosage: UNK
     Route: 065
     Dates: start: 20220311

REACTIONS (18)
  - Peripheral artery stenosis [Unknown]
  - Dehydration [Unknown]
  - Loss of consciousness [Unknown]
  - Hypotension [Unknown]
  - Weight decreased [Unknown]
  - Fatigue [Unknown]
  - Hypersensitivity [Recovered/Resolved]
  - Skin irritation [Recovered/Resolved]
  - Skin discolouration [Unknown]
  - Onychomadesis [Unknown]
  - Hypoaesthesia [Unknown]
  - Hypotonia [Recovering/Resolving]
  - Body mass index decreased [Unknown]
  - Urticaria [Unknown]
  - Psoriasis [Unknown]
  - Skin lesion [Unknown]
  - COVID-19 [Unknown]
  - Cough [Unknown]

NARRATIVE: CASE EVENT DATE: 20211029
